FAERS Safety Report 5412801-1 (Version None)
Quarter: 2007Q3

REPORT INFORMATION
  Report Type: 
  Country: None (occurrence: None)
  Receive Date: 20070713
  Receipt Date: 20070509
  Transmission Date: 20080115
  Serious: No
  Sender: FDA-Public Use
  Company Number: 2007SP001730

PATIENT
  Age: 78 Year
  Sex: Male
  Weight: 70.7611 kg

DRUGS (4)
  1. LUNESTA [Suspect]
     Indication: INSOMNIA
     Dosage: 3 MG 1X ORAL
     Route: 048
     Dates: start: 20070508, end: 20070508
  2. ANTIHYPERTENSIVES [Concomitant]
  3. PANTOPRAZOLE SODIUM [Concomitant]
  4. SIMVASTATIN [Concomitant]

REACTIONS (2)
  - ERYTHEMA [None]
  - PRURITUS [None]
